FAERS Safety Report 4726895-X (Version None)
Quarter: 2005Q3

REPORT INFORMATION
  Report Type: 
  Country: None (occurrence: None)
  Receive Date: 20050726
  Receipt Date: 20050714
  Transmission Date: 20060218
  Serious: Yes (Hospitalization, Disabling, Other)
  Sender: FDA-Public Use
  Company Number: 2005088972

PATIENT
  Age: 72 Year
  Sex: Female
  Weight: 72.5755 kg

DRUGS (7)
  1. BEXTRA [Suspect]
     Indication: PAIN
     Dosage: 10 MG (10 M G, 1 IN 1 D)
     Route: 048
     Dates: start: 20031201, end: 20031201
  2. DITROPAN XL [Concomitant]
  3. TIRAMTERENE AND HYDROCHLOROTHIAZID   HARRIS  (HYDROCHLOROTHIAZIDE, TRI [Concomitant]
  4. POTASSIUM CHLORIDE [Concomitant]
  5. ATENOLOL [Concomitant]
  6. ACETYLSALICYLIC ACID SRT [Concomitant]
  7. MULTIVITAMIN [Concomitant]

REACTIONS (5)
  - CHEST PAIN [None]
  - HERPES ZOSTER [None]
  - MONOPLEGIA [None]
  - SPINAL COLUMN STENOSIS [None]
  - WALKING AID USER [None]
